FAERS Safety Report 9383009 (Version 1)
Quarter: 2013Q3

REPORT INFORMATION
  Report Type: Spontaneous
  Country: US (occurrence: US)
  Receive Date: 20130703
  Receipt Date: 20130703
  Transmission Date: 20140515
  Serious: Yes (Hospitalization)
  Sender: FDA-Public Use
  Company Number: US-CELGENEUS-163-21880-13063666

PATIENT
  Age: 74 Year
  Sex: Male

DRUGS (1)
  1. REVLIMID [Suspect]
     Indication: LYMPHOMA
     Dosage: 10 MILLIGRAM
     Route: 048
     Dates: start: 20130613, end: 20130616

REACTIONS (2)
  - Lymphadenopathy [Not Recovered/Not Resolved]
  - Dehydration [Not Recovered/Not Resolved]
